FAERS Safety Report 4795038-9 (Version None)
Quarter: 2005Q4

REPORT INFORMATION
  Report Type: 
  Country: None (occurrence: None)
  Receive Date: 20051006
  Receipt Date: 20050927
  Transmission Date: 20060501
  Serious: Yes (Hospitalization)
  Sender: FDA-Public Use
  Company Number: 2005-09-1635

PATIENT
  Sex: Female

DRUGS (2)
  1. CELESTENE (BETAMETHASONE SODIUM PHOSPHATE) INJECTABLE SUSPENSION ^LIKE [Suspect]
     Indication: BONE PAIN
     Dosage: 4 MG INTRAMUSCULAR; 1 DOSE
     Route: 030
  2. VISCERALGINE INJECTABLE [Suspect]
     Indication: BONE PAIN
     Dosage: 1 AMPOULE INTRAMUSCULAR; 1 DOSE
     Route: 030

REACTIONS (2)
  - HAEMATOMA [None]
  - PAIN IN EXTREMITY [None]
